FAERS Safety Report 7002399-9 (Version None)
Quarter: 2010Q3

REPORT INFORMATION
  Report Type: 
  Country: None (occurrence: None)
  Receive Date: 20100920
  Receipt Date: 20080523
  Transmission Date: 20110219
  Serious: Yes (Hospitalization)
  Sender: FDA-Public Use
  Company Number: US-ASTRAZENECA-2008UW01681

PATIENT
  Age: 49 Year
  Sex: Female
  Weight: 97.1 kg

DRUGS (34)
  1. SEROQUEL [Suspect]
     Indication: BIPOLAR DISORDER
     Dosage: 25 MGS T.I.D AND 50 MGS QHS
     Route: 048
     Dates: start: 20020707
  2. SEROQUEL [Suspect]
     Indication: BIPOLAR I DISORDER
     Dosage: 25 MGS T.I.D AND 50 MGS QHS
     Route: 048
     Dates: start: 20020707
  3. SEROQUEL [Suspect]
     Dosage: INCLUDING BUT NOT LIMITED TO 25 MG, 100 MG AND  200MG
     Route: 048
     Dates: start: 20020715
  4. SEROQUEL [Suspect]
     Dosage: INCLUDING BUT NOT LIMITED TO 25 MG, 100 MG AND  200MG
     Route: 048
     Dates: start: 20020715
  5. ABILIFY [Concomitant]
     Dates: start: 20040101, end: 20060101
  6. HALDOL [Concomitant]
     Dates: start: 19800101
  7. TOPAMAX [Concomitant]
     Dates: start: 20070101
  8. PAXIL [Concomitant]
     Dates: start: 20020101
  9. LEXAPRO [Concomitant]
  10. TRAZODONE HCL [Concomitant]
     Dates: start: 20040101
  11. RANITIDINE [Concomitant]
     Dates: start: 20020717
  12. BISOPROLOL FUMARATE AND HYDROCHLOROTHIAZIDE [Concomitant]
     Dosage: 5/6.25 MG TWICE A DAY
     Dates: start: 20020806
  13. COZAAR [Concomitant]
     Dates: start: 20020806
  14. ACETAMINOPHEN-COD [Concomitant]
     Dates: start: 20020812
  15. DIPHENHYDRAMINE HCL [Concomitant]
     Dates: start: 20020911
  16. ACCUPRIL [Concomitant]
     Route: 048
  17. METOPROLOL [Concomitant]
     Route: 048
     Dates: start: 20021106
  18. IBUPROFEN [Concomitant]
     Dates: start: 20030426
  19. BISACODYL [Concomitant]
     Dates: start: 20030620
  20. OXAZEPAM [Concomitant]
     Dates: start: 20030620
  21. LISINOPRIL [Concomitant]
     Dates: start: 20030718
  22. NIFEDIPINE [Concomitant]
     Dates: start: 20030909
  23. NAPROXEN [Concomitant]
     Dates: start: 20031212
  24. DEPAKOTE [Concomitant]
     Dates: start: 20040112
  25. HYDROCHLOROTHIAZIDE [Concomitant]
     Route: 048
     Dates: start: 20051203
  26. DIOVAN [Concomitant]
     Route: 048
     Dates: start: 20070402
  27. PRILOSEC [Concomitant]
     Route: 048
     Dates: start: 20070402
  28. SIMVASTATIN [Concomitant]
     Route: 048
     Dates: start: 20070402
  29. ATENOLOL [Concomitant]
     Route: 048
     Dates: start: 20070506
  30. METHOCARBAMOL [Concomitant]
     Route: 048
     Dates: start: 20070402
  31. PRAVASTATIN [Concomitant]
     Dates: start: 20071003
  32. ASPIRIN [Concomitant]
     Route: 048
     Dates: start: 20071003
  33. PHENYTOIN SODIUM [Concomitant]
     Dates: start: 20071130
  34. JANUVIA [Concomitant]
     Route: 048
     Dates: start: 20080201

REACTIONS (4)
  - CONVULSION [None]
  - DIABETES MELLITUS [None]
  - OBESITY [None]
  - TYPE 2 DIABETES MELLITUS [None]
